FAERS Safety Report 6398705-9 (Version None)
Quarter: 2009Q4

REPORT INFORMATION
  Report Type: 
  Country: None (occurrence: None)
  Receive Date: 20091013
  Receipt Date: 20090930
  Transmission Date: 20100525
  Serious: No
  Sender: FDA-Public Use
  Company Number: SE-ELI_LILLY_AND_COMPANY-SE200910000071

PATIENT
  Age: 46 Year
  Sex: Male

DRUGS (3)
  1. ZYPREXA [Suspect]
     Dosage: 2.5 MG, UNK
  2. ABILIFY [Concomitant]
     Dates: start: 20080101
  3. LITHIUM [Concomitant]
     Dates: start: 20080101

REACTIONS (1)
  - THROMBOCYTOPENIA [None]
